APPROVED DRUG PRODUCT: CLEOCIN
Active Ingredient: CLINDAMYCIN PHOSPHATE
Strength: EQ 2% BASE
Dosage Form/Route: CREAM;VAGINAL
Application: N050680 | Product #001
Applicant: PFIZER INC
Approved: Aug 11, 1992 | RLD: No | RS: No | Type: DISCN